FAERS Safety Report 12977604 (Version 2)
Quarter: 2016Q4

REPORT INFORMATION
  Report Type: Spontaneous
  Country: US (occurrence: US)
  Receive Date: 20161128
  Receipt Date: 20161222
  Transmission Date: 20170207
  Serious: Yes (Other)
  Sender: FDA-Public Use
  Company Number: US-AUROBINDO-AUR-APL-2016-14229

PATIENT

DRUGS (1)
  1. MINOCYCLINE HYDROCHLORIDE CAPSULES USP 100 MG [Suspect]
     Active Substance: MINOCYCLINE HYDROCHLORIDE
     Indication: PRODUCT USED FOR UNKNOWN INDICATION
     Dosage: 100 MG, UNK
     Route: 065

REACTIONS (4)
  - Motor dysfunction [Unknown]
  - Depression [Unknown]
  - Nervous system disorder [Unknown]
  - Mood swings [Unknown]
